FAERS Safety Report 9378151 (Version 2)
Quarter: 2013Q3

REPORT INFORMATION
  Report Type: Spontaneous
  Country: GB (occurrence: GB)
  Receive Date: 20130701
  Receipt Date: 20130821
  Transmission Date: 20140515
  Serious: Yes (Hospitalization)
  Sender: FDA-Public Use
  Company Number: GB-GLAXOSMITHKLINE-B0902596A

PATIENT
  Age: 41 Year
  Sex: Male

DRUGS (7)
  1. AVANDIA [Suspect]
     Indication: PRODUCT USED FOR UNKNOWN INDICATION
     Dosage: 8MG PER DAY
     Route: 065
     Dates: start: 200403
  2. METFORMIN [Concomitant]
     Dosage: 850MG THREE TIMES PER DAY
  3. BENDROFLUMETHIAZIDE [Concomitant]
     Dosage: 2.5MG IN THE MORNING
  4. ATENOLOL [Concomitant]
     Dosage: 50MG IN THE MORNING
  5. CANDESARTAN [Concomitant]
     Dosage: 4MG PER DAY
  6. ATORVASTATIN [Concomitant]
     Dosage: 20MG PER DAY
  7. ASPIRIN [Concomitant]
     Dosage: 75MG PER DAY

REACTIONS (1)
  - Transient ischaemic attack [Unknown]
